FAERS Safety Report 6245488-9 (Version None)
Quarter: 2009Q2

REPORT INFORMATION
  Report Type: 
  Country: None (occurrence: None)
  Receive Date: 20090625
  Receipt Date: 20090618
  Transmission Date: 20091009
  Serious: Yes (Other)
  Sender: FDA-Public Use
  Company Number: JP-WYE-H09860309

PATIENT

DRUGS (1)
  1. ZOSYN [Suspect]
     Indication: DRUG USE FOR UNKNOWN INDICATION
     Dosage: UNKNOWN
     Route: 041

REACTIONS (1)
  - RHABDOMYOLYSIS [None]
